FAERS Safety Report 5130873-9 (Version None)
Quarter: 2006Q4

REPORT INFORMATION
  Report Type: 
  Country: None (occurrence: None)
  Receive Date: 20061013
  Receipt Date: 20060929
  Transmission Date: 20070319
  Serious: Yes (Death, Other)
  Sender: FDA-Public Use
  Company Number: 06-046

PATIENT

DRUGS (1)
  1. METHAZOLAMIDE [Suspect]

REACTIONS (1)
  - STEVENS-JOHNSON SYNDROME [None]
